FAERS Safety Report 8715142 (Version 2)
Quarter: 2013Q4

REPORT INFORMATION
  Report Type: Spontaneous
  Country: JP (occurrence: JP)
  Receive Date: 20120809
  Receipt Date: 20131118
  Transmission Date: 20140711
  Serious: Yes (Hospitalization, Other)
  Sender: FDA-Public Use
  Company Number: JP-PFIZER INC-2012174276

PATIENT
  Age: 53 Year
  Sex: Male
  Weight: 65 kg

DRUGS (8)
  1. TORISEL [Suspect]
     Indication: METASTATIC RENAL CELL CARCINOMA
     Dosage: 25 MG, WEEKLY
     Route: 041
     Dates: start: 20120508, end: 20120710
  2. TORISEL [Suspect]
     Indication: METASTASES TO LUNG
  3. TORISEL [Suspect]
     Indication: METASTASES TO LIVER
  4. TAKEPRON [Concomitant]
     Indication: PROPHYLAXIS AGAINST GASTROINTESTINAL ULCER
     Dosage: 15 MG, 1X/DAY
     Route: 048
     Dates: start: 20120326, end: 20120717
  5. FEBURIC [Concomitant]
     Indication: HYPERURICAEMIA
     Dosage: 20 MG, 1X/DAY
     Route: 048
     Dates: start: 20120605, end: 20120717
  6. NAIXAN [Concomitant]
     Indication: TUMOUR ASSOCIATED FEVER
     Dosage: 100 MG, 3X/DAY
     Route: 048
     Dates: start: 20120625, end: 20120717
  7. CELECOX [Concomitant]
     Indication: TUMOUR ASSOCIATED FEVER
     Dosage: 200 MG, 2X/DAY
     Route: 048
     Dates: start: 20120703, end: 20120717
  8. CELECOX [Concomitant]
     Indication: METASTATIC RENAL CELL CARCINOMA

REACTIONS (5)
  - Interstitial lung disease [Recovering/Resolving]
  - Stomatitis [Recovering/Resolving]
  - Fungal infection [Not Recovered/Not Resolved]
  - Gastrointestinal haemorrhage [Unknown]
  - Haemorrhagic anaemia [Unknown]
